FAERS Safety Report 20022785 (Version 1)
Quarter: 2021Q4

REPORT INFORMATION
  Report Type: Spontaneous
  Country: PT (occurrence: PT)
  Receive Date: 20211102
  Receipt Date: 20211102
  Transmission Date: 20220303
  Serious: Yes (Other)
  Sender: FDA-Public Use
  Company Number: PT-SUN PHARMACEUTICAL INDUSTRIES LTD-2021RR-316461

PATIENT
  Age: 35 Year
  Sex: Male

DRUGS (4)
  1. ESCITALOPRAM [Suspect]
     Active Substance: ESCITALOPRAM OXALATE
     Indication: Dementia Alzheimer^s type
     Dosage: 20 MILLIGRAM, ID
  2. PAROXETINE [Suspect]
     Active Substance: PAROXETINE
     Indication: Dementia Alzheimer^s type
     Dosage: UNK
     Route: 065
  3. DONEPEZIL [Suspect]
     Active Substance: DONEPEZIL
     Indication: Dementia Alzheimer^s type
     Dosage: 10 MILLIGRAM, ID
     Route: 065
  4. MEXAZOLAM [Suspect]
     Active Substance: MEXAZOLAM
     Indication: Dementia Alzheimer^s type
     Dosage: 1 MILLIGRAM, ID
     Route: 065

REACTIONS (2)
  - Drug ineffective [Unknown]
  - Disease progression [Unknown]
